FAERS Safety Report 23838111 (Version 2)
Quarter: 2024Q3

REPORT INFORMATION
  Report Type: Report from Study
  Country: CA (occurrence: CA)
  Receive Date: 20240509
  Receipt Date: 20240701
  Transmission Date: 20241016
  Serious: Yes (Other)
  Sender: ABBVIE
  Company Number: CA-ABBVIE-5752299

PATIENT
  Age: 72 Year
  Sex: Female

DRUGS (2)
  1. OZURDEX [Suspect]
     Active Substance: DEXAMETHASONE
     Indication: Diabetic retinal oedema
     Dosage: TIME INTERVAL: AS NECESSARY: FORM STRENGTH: 0.5 MILLIGRAM
     Route: 031
     Dates: start: 20240203
  2. LATANOPROST [Concomitant]
     Active Substance: LATANOPROST
     Indication: Product used for unknown indication
     Dosage: DROP
     Route: 061

REACTIONS (2)
  - Intraocular pressure fluctuation [Unknown]
  - Influenza [Unknown]

NARRATIVE: CASE EVENT DATE: 20240101
